FAERS Safety Report 10367317 (Version 7)
Quarter: 2015Q1

REPORT INFORMATION
  Report Type: Report from Study
  Country: US (occurrence: US)
  Receive Date: 20140807
  Receipt Date: 20150304
  Transmission Date: 20150720
  Serious: Yes (Other)
  Sender: FDA-Public Use
  Company Number: US-GLENMARK GENERICS INC.-2014GMK009477

PATIENT
  Age: 28 Year
  Sex: Female
  Weight: 75.3 kg

DRUGS (17)
  1. ADAPALENE AND BENZOYL PEROXIDE [Suspect]
     Active Substance: ADAPALENE\BENZOYL PEROXIDE
     Dosage: ONE APPLICATION, QD
     Route: 061
     Dates: start: 20140417, end: 20140422
  2. TYLENOL EXTRA STRENGTH [Concomitant]
     Active Substance: ACETAMINOPHEN
     Dosage: 1000 MG, PRN
     Route: 048
     Dates: start: 2004
  3. PITOCIN [Concomitant]
     Active Substance: OXYTOCIN
     Indication: UTERINE CERVICAL LACERATION
     Dosage: UNK
  4. SIMETHICONE [Concomitant]
     Active Substance: DIMETHICONE\SILICON DIOXIDE\SIMETHICONE
     Indication: PRODUCT USED FOR UNKNOWN INDICATION
     Dosage: 160 MG, 4 TIMES DAILY
     Route: 048
     Dates: start: 20141222, end: 20141223
  5. HYDROCORTISONE ACETATE W/PRAMOCAINE HCL [Concomitant]
     Indication: PRODUCT USED FOR UNKNOWN INDICATION
     Dosage: UNK, 1 APPLICATION
     Route: 054
     Dates: start: 20141222, end: 20141223
  6. NORCO [Concomitant]
     Active Substance: ACETAMINOPHEN\HYDROCODONE BITARTRATE
     Indication: PAIN
     Dosage: 5-325 MG, PRN
     Route: 048
  7. BENZOCAINE. [Concomitant]
     Active Substance: BENZOCAINE
     Indication: PRODUCT USED FOR UNKNOWN INDICATION
     Dosage: 1 DF, UNK
     Route: 061
     Dates: start: 20141222, end: 20141223
  8. HYDROCODONE BITARTRATE AND ACETAMINOPHEN [Concomitant]
     Active Substance: ACETAMINOPHEN\HYDROCODONE BITARTRATE
     Indication: PRODUCT USED FOR UNKNOWN INDICATION
     Dosage: 1 DF, EVERY 4 HOURS
     Route: 048
     Dates: start: 20141222, end: 20141223
  9. SENNA [Concomitant]
     Active Substance: SENNA LEAF\SENNOSIDES\SENNOSIDES A AND B
     Indication: PRODUCT USED FOR UNKNOWN INDICATION
     Dosage: UNK, BID
     Route: 048
     Dates: start: 20141222, end: 20141223
  10. MULTIVITAMINS [Concomitant]
     Active Substance: VITAMINS
     Dosage: 1 DF, QD
     Route: 048
     Dates: start: 2006
  11. ONDANSETRON [Concomitant]
     Active Substance: ONDANSETRON
     Indication: PRODUCT USED FOR UNKNOWN INDICATION
     Dosage: 4 MG, EVERY 6 HOURS
     Route: 042
     Dates: start: 20141221, end: 20141222
  12. PRENATAL VITAMINS                  /07499601/ [Concomitant]
     Dosage: 1 DF, QD
     Route: 048
     Dates: start: 20140502
  13. NAPROXEN. [Concomitant]
     Active Substance: NAPROXEN
     Indication: PRODUCT USED FOR UNKNOWN INDICATION
     Dosage: 1 DF, UNK
     Route: 048
  14. HYDROCODONE BITARTRATE AND ACETAMINOPHEN [Concomitant]
     Active Substance: ACETAMINOPHEN\HYDROCODONE BITARTRATE
     Dosage: 2 DF, EVERY 4 HOURS
     Route: 048
     Dates: start: 20141222, end: 20141223
  15. EPHEDRINE [Concomitant]
     Active Substance: EPHEDRINE
     Indication: PRODUCT USED FOR UNKNOWN INDICATION
     Dosage: 25 MG, SINGLE
     Route: 030
     Dates: start: 20141221, end: 20141222
  16. HYDROCORTISONE ACETATE W/PRAMOCAINE HCL [Concomitant]
     Dosage: UNK, 1 APPLICATION
     Route: 061
     Dates: start: 20141222, end: 20141223
  17. DOCUSATE [Concomitant]
     Active Substance: DOCUSATE
     Indication: PRODUCT USED FOR UNKNOWN INDICATION
     Dosage: 100 MG, BID
     Route: 048
     Dates: start: 20141222, end: 20141223

REACTIONS (2)
  - Exposure during pregnancy [Not Recovered/Not Resolved]
  - Hyperemesis gravidarum [Recovering/Resolving]

NARRATIVE: CASE EVENT DATE: 20140501
